FAERS Safety Report 13046974 (Version 1)
Quarter: 2016Q4

REPORT INFORMATION
  Report Type: Spontaneous
  Country: CA (occurrence: CA)
  Receive Date: 20161220
  Receipt Date: 20161220
  Transmission Date: 20170207
  Serious: Yes (Other)
  Sender: FDA-Public Use
  Company Number: CA-BAYER-2016-236739

PATIENT
  Sex: Female

DRUGS (2)
  1. MIRENA [Suspect]
     Active Substance: LEVONORGESTREL
     Dosage: 20 MCG/24HR, CONT
     Route: 015
     Dates: start: 201602
  2. MIRENA [Suspect]
     Active Substance: LEVONORGESTREL

REACTIONS (8)
  - Vaginal discharge [Recovered/Resolved]
  - Syncope [Recovered/Resolved]
  - Vulvovaginal mycotic infection [Recovered/Resolved]
  - Migraine [Recovered/Resolved]
  - Abdominal pain lower [Recovered/Resolved]
  - Depression suicidal [Recovered/Resolved]
  - Genital haemorrhage [Recovered/Resolved]
  - Acne [Recovered/Resolved]
